FAERS Safety Report 9089386 (Version 1)
Quarter: 2013Q1

REPORT INFORMATION
  Report Type: Spontaneous
  Country: EG (occurrence: EG)
  Receive Date: 20130201
  Receipt Date: 20130201
  Transmission Date: 20140127
  Serious: Yes (Other)
  Sender: FDA-Public Use
  Company Number: EG-009507513-1301EGY011792

PATIENT
  Age: 2 Year
  Sex: Male

DRUGS (1)
  1. NASONEX [Suspect]
     Indication: RHINITIS ALLERGIC
     Dosage: 1 PUFF, ONCE
     Route: 045
     Dates: start: 20130117, end: 20130117

REACTIONS (3)
  - Stridor [Recovered/Resolved]
  - Bronchospasm [Recovered/Resolved]
  - Croup noninfectious [Recovered/Resolved]
